FAERS Safety Report 4797373-7 (Version None)
Quarter: 2005Q4

REPORT INFORMATION
  Report Type: 
  Country: None (occurrence: None)
  Receive Date: 20051013
  Receipt Date: 20051004
  Transmission Date: 20060501
  Serious: Yes (Death)
  Sender: FDA-Public Use
  Company Number: US-JNJFOC-20050902613

PATIENT
  Age: 23 Year
  Sex: Female

DRUGS (5)
  1. ASPIRIN [Suspect]
     Route: 048
  2. FLECAINIDE ACETATE [Suspect]
     Route: 048
  3. DILTIAZEM [Suspect]
     Route: 048
  4. TRAZODONE [Concomitant]
  5. THORAZINE [Concomitant]

REACTIONS (7)
  - CIRCULATORY COLLAPSE [None]
  - COMPLETED SUICIDE [None]
  - ELECTROMECHANICAL DISSOCIATION [None]
  - GRAND MAL CONVULSION [None]
  - INTENTIONAL DRUG MISUSE [None]
  - MULTIPLE DRUG OVERDOSE [None]
  - VENTRICULAR TACHYCARDIA [None]
